FAERS Safety Report 9158894 (Version 1)
Quarter: 2013Q1

REPORT INFORMATION
  Report Type: Spontaneous
  Country: PL (occurrence: None)
  Receive Date: 20130311
  Receipt Date: 20130311
  Transmission Date: 20140127
  Serious: Yes (Death, Hospitalization)
  Sender: FDA-Public Use
  Company Number: 2013-03732

PATIENT
  Age: 21 Year
  Sex: Male

DRUGS (1)
  1. PARACETAMOL (UNKNOWN) (PARACETAMOL) UNK, UNKUNK [Suspect]
     Indication: PRODUCT USED FOR UNKNOWN INDICATION

REACTIONS (7)
  - Liver injury [None]
  - Hepatic encephalopathy [None]
  - Overdose [None]
  - Brain death [None]
  - Liver transplant [None]
  - Blood creatinine increased [None]
  - Blood urea increased [None]
